FAERS Safety Report 11029569 (Version 1)
Quarter: 2015Q2

REPORT INFORMATION
  Report Type: Spontaneous
  Country: US (occurrence: None)
  Receive Date: 20150413
  Receipt Date: 20150413
  Transmission Date: 20150821
  Serious: Yes (Other)
  Sender: FDA-Public Use
  Company Number: US-H14001-14-01654

PATIENT
  Age: 79 Year
  Sex: Male

DRUGS (6)
  1. PREDNISONE (PREDNISONE) (UNKNOWN) (PREDNISONE) [Suspect]
     Active Substance: PREDNISONE
     Indication: CHRONIC LYMPHOCYTIC LEUKAEMIA
     Dosage: 60 MG/M2 (DAYS 1-5 EVERY 21 DAYS)
     Route: 048
     Dates: start: 20110119, end: 20110701
  2. CYTOXAN [Suspect]
     Active Substance: CYCLOPHOSPHAMIDE
     Indication: CHRONIC LYMPHOCYTIC LEUKAEMIA
     Dosage: 250 MG/M2 (DAYS 1-5 EVERY 21 DAYS)
     Route: 042
     Dates: start: 20110119
  3. ADRIAMYCIN [Suspect]
     Active Substance: DOXORUBICIN HYDROCHLORIDE
     Indication: CHRONIC LYMPHOCYTIC LEUKAEMIA
     Dosage: 8 MG/M2 (DAYS 1-4 EVERY 21 DAYS)
     Route: 042
     Dates: start: 20110119, end: 20110701
  4. ETOPOSIDE (ETOPOSIDE) (UNKNOWN) (ETOPOSIDE) [Suspect]
     Active Substance: ETOPOSIDE
     Indication: CHRONIC LYMPHOCYTIC LEUKAEMIA
     Dosage: 50 MG/M2 (DAYS 1-4 EVERY 21 DAYS)
     Route: 042
     Dates: start: 20110119, end: 20110701
  5. VINCRISTINE (VINCRISTINE) (UNKNOWN) (VINCRISTINE) [Suspect]
     Active Substance: VINCRISTINE
     Indication: CHRONIC LYMPHOCYTIC LEUKAEMIA
     Dosage: 2 MG/M2 (DAYS 1-4 EVERY 21 DAYS)
     Route: 042
     Dates: start: 20110126
  6. RITUXIMAB (RITUXIMAB) (UNKNOWN) (RITUXIMAB) [Suspect]
     Active Substance: RITUXIMAB
     Indication: CHRONIC LYMPHOCYTIC LEUKAEMIA
     Dosage: 375 MG/M2 (EVERY 21 DAYS)
     Route: 042
     Dates: start: 20110119

REACTIONS (1)
  - Pneumonitis [None]

NARRATIVE: CASE EVENT DATE: 20110325
